FAERS Safety Report 14019229 (Version 1)
Quarter: 2017Q3

REPORT INFORMATION
  Report Type: Spontaneous
  Country: US (occurrence: US)
  Receive Date: 20170928
  Receipt Date: 20170928
  Transmission Date: 20171128
  Serious: No
  Sender: FDA-Public Use
  Company Number: US-BION-005033

PATIENT
  Age: 80 Year
  Sex: Male
  Weight: 68.95 kg

DRUGS (1)
  1. LOPERAMIDE HYDROCHLORIDE. [Suspect]
     Active Substance: LOPERAMIDE HYDROCHLORIDE
     Route: 048

REACTIONS (2)
  - Product solubility abnormal [Unknown]
  - Burn oesophageal [Recovered/Resolved]

NARRATIVE: CASE EVENT DATE: 20161014
